FAERS Safety Report 9997902 (Version 1)
Quarter: 2014Q1

REPORT INFORMATION
  Report Type: Spontaneous
  Country: US (occurrence: US)
  Receive Date: 20140311
  Receipt Date: 20140311
  Transmission Date: 20141002
  Serious: No
  Sender: FDA-Public Use
  Company Number: US-PFIZER INC-2014067832

PATIENT
  Age: 43 Year
  Sex: 0

DRUGS (1)
  1. SOMAVERT [Suspect]
     Indication: ACROMEGALY
     Dosage: UNK
     Dates: start: 201111

REACTIONS (3)
  - Eructation [Unknown]
  - Dysgeusia [Unknown]
  - Abdominal distension [Unknown]
